FAERS Safety Report 9935868 (Version 1)
Quarter: 2014Q1

REPORT INFORMATION
  Report Type: Report from Study
  Country: BR (occurrence: BR)
  Receive Date: 20140228
  Receipt Date: 20140228
  Transmission Date: 20141002
  Serious: Yes (Life-Threatening)
  Sender: FDA-Public Use
  Company Number: PHHY2014BR024676

PATIENT
  Sex: Female
  Weight: 69 kg

DRUGS (2)
  1. DIOVAN HCT [Suspect]
     Indication: HYPERTENSION
     Dosage: 2 DF (160MG VALS AND UKN MG HCTZ), (1 TABLET IN THE MORNING AND 1 TABLET AT NIGHT)
     Route: 048
  2. DIOVAN HCT [Suspect]
     Dosage: 1 DF (80MG VALS AND 12.5MG HCTZ), QD
     Route: 048
     Dates: start: 201311

REACTIONS (3)
  - Apparent death [Recovering/Resolving]
  - Dyspnoea [Recovering/Resolving]
  - Venous occlusion [Recovering/Resolving]
